FAERS Safety Report 5196214-6 (Version None)
Quarter: 2007Q1

REPORT INFORMATION
  Report Type: 
  Country: None (occurrence: None)
  Receive Date: 20070102
  Receipt Date: 20061222
  Transmission Date: 20070707
  Serious: Yes (Hospitalization)
  Sender: FDA-Public Use
  Company Number: DE-ROXANE LABORATORIES, INC-2006-DE-06840DE

PATIENT
  Sex: Female

DRUGS (3)
  1. BUSCOPAN PLUS [Suspect]
     Dosage: 1X4 TABLETS
     Route: 048
  2. ASPIRIN [Suspect]
     Dosage: 1X4 TABLETS
     Route: 048
  3. CODEIN [Suspect]
     Dosage: 1X6 TABLETS
     Route: 048

REACTIONS (2)
  - DRUG ABUSER [None]
  - SUICIDE ATTEMPT [None]
